FAERS Safety Report 9601361 (Version 2)
Quarter: 2013Q4

REPORT INFORMATION
  Report Type: Spontaneous
  Country: IT (occurrence: IT)
  Receive Date: 20131007
  Receipt Date: 20131217
  Transmission Date: 20140711
  Serious: Yes (Hospitalization)
  Sender: FDA-Public Use
  Company Number: IT-ROCHE-1285202

PATIENT
  Age: 33 Year
  Sex: Female

DRUGS (3)
  1. RIVOTRIL [Suspect]
     Indication: PRODUCT USED FOR UNKNOWN INDICATION
     Route: 065
     Dates: start: 20130731, end: 20130801
  2. CITALOPRAM [Suspect]
     Indication: PRODUCT USED FOR UNKNOWN INDICATION
     Route: 065
     Dates: start: 20130731, end: 20130801
  3. IMPROMEN [Concomitant]
     Route: 065
     Dates: start: 20130731, end: 20130801

REACTIONS (1)
  - Sopor [Recovering/Resolving]
